FAERS Safety Report 5392496-6 (Version None)
Quarter: 2007Q3

REPORT INFORMATION
  Report Type: 
  Country: None (occurrence: None)
  Receive Date: 20070720
  Receipt Date: 20070712
  Transmission Date: 20080115
  Serious: Yes (Other)
  Sender: FDA-Public Use
  Company Number: US-ELI_LILLY_AND_COMPANY-US200707003186

PATIENT
  Sex: Female

DRUGS (1)
  1. HUMALOG MIX 75/25 [Suspect]

REACTIONS (9)
  - ARTHRITIS [None]
  - BACK PAIN [None]
  - CARDIAC PACEMAKER INSERTION [None]
  - CORNEAL TRANSPLANT [None]
  - EYE OPERATION [None]
  - HEADACHE [None]
  - NECK PAIN [None]
  - PAIN IN EXTREMITY [None]
  - VISUAL ACUITY REDUCED [None]
